FAERS Safety Report 8261101-3 (Version None)
Quarter: 2012Q2

REPORT INFORMATION
  Report Type: 
  Country: None (occurrence: None)
  Receive Date: 20120405
  Receipt Date: 20120331
  Transmission Date: 20120825
  Serious: Yes (Death, Hospitalization, Other)
  Sender: FDA-Public Use
  Company Number: PHHY2011DE58506

PATIENT
  Sex: Male
  Weight: 104 kg

DRUGS (9)
  1. PLATELET AGGREGATION INHIBITOR OF NSAID GROUP [Concomitant]
  2. SIMVASTATIN [Concomitant]
     Dosage: 20 MG PER DAY
     Route: 048
     Dates: start: 20081210
  3. LEVOTHYROXINE SODIUM [Concomitant]
     Indication: HYPOTHYROIDISM
     Dosage: 75 UG, PER DAY
     Route: 048
     Dates: start: 20020630
  4. CALCIUM CHANNEL BLOCKERS [Concomitant]
     Dates: start: 20090819, end: 20090819
  5. CLOPIDOGREL BISULFATE AND ASPIRIN [Concomitant]
     Dosage: 1 DF, 75 MG CLOPIDOGREL AND 100 MG ACETYL SALICYLIC ACID, DAILY
     Route: 048
     Dates: start: 20100714
  6. DIURETICS [Concomitant]
     Dosage: UNK UKN, UNK
     Dates: start: 20090819
  7. FLECAINIDE ACETATE [Concomitant]
     Dosage: 100 MG, PER DAY
     Route: 048
     Dates: start: 20100714
  8. DIOVAN HCT [Suspect]
     Indication: HYPERTENSION
     Dosage: 1 DF, 160 MG VALSARTAN AND 25 MG HYDROCHLOROTHIAZIDE, DAILY
     Route: 048
     Dates: start: 20050517
  9. HMG COA REDUCTASE INHIBITORS [Concomitant]

REACTIONS (8)
  - DYSPNOEA [None]
  - GASTRITIS [None]
  - HYPERTENSION [None]
  - ATRIAL FIBRILLATION [None]
  - HEART RATE DECREASED [None]
  - LEFT VENTRICULAR HYPERTROPHY [None]
  - LEUKAEMIA [None]
  - ANGINA PECTORIS [None]
